FAERS Safety Report 18579722 (Version 1)
Quarter: 2020Q4

REPORT INFORMATION
  Report Type: Spontaneous
  Country: GB (occurrence: GB)
  Receive Date: 20201204
  Receipt Date: 20201204
  Transmission Date: 20210114
  Serious: Yes (Other)
  Sender: FDA-Public Use
  Company Number: GB-TEVA-2020-GB-1854704

PATIENT
  Age: 22 Year
  Sex: Female
  Weight: 99.3 kg

DRUGS (1)
  1. PROPRANOLOL [Suspect]
     Active Substance: PROPRANOLOL HYDROCHLORIDE
     Indication: ANXIETY
     Dosage: UNIT DOSE : 80 MG
     Route: 048
     Dates: start: 20200916

REACTIONS (5)
  - Self-injurious ideation [Unknown]
  - Intrusive thoughts [Unknown]
  - Suicidal ideation [Unknown]
  - Depression [Not Recovered/Not Resolved]
  - Maternal exposure during pregnancy [Unknown]

NARRATIVE: CASE EVENT DATE: 20201104
